FAERS Safety Report 8770433 (Version 3)
Quarter: 2012Q4

REPORT INFORMATION
  Report Type: 
  Country: US (occurrence: US)
  Receive Date: 20120906
  Receipt Date: 20120928
  Transmission Date: 20130627
  Serious: Yes (Other)
  Sender: FDA-Public Use
  Company Number: US-JNJFOC-20120814940

PATIENT
  Age: 80 None
  Sex: Male
  Weight: 76.4 kg

DRUGS (10)
  1. XARELTO [Suspect]
     Indication: THROMBOSIS PROPHYLAXIS
     Route: 048
     Dates: start: 20120828, end: 20120917
  2. XARELTO [Suspect]
     Indication: KNEE ARTHROPLASTY
     Route: 048
     Dates: start: 20120828, end: 20120917
  3. MULTIVITAMINS [Concomitant]
  4. CALCIUM CARBONATE [Concomitant]
  5. ACTAMINOPHEN [Concomitant]
  6. OXYCONTIN [Concomitant]
  7. ZOFRAN [Concomitant]
  8. MIRALAX [Concomitant]
  9. PRAVACHOL [Concomitant]
  10. CLINDAMYCIN [Concomitant]
     Indication: PREMEDICATION

REACTIONS (2)
  - Thrombocytopenia [Recovering/Resolving]
  - International normalised ratio increased [Recovering/Resolving]
